FAERS Safety Report 9760803 (Version 2)
Quarter: 2013Q4

REPORT INFORMATION
  Report Type: Spontaneous
  Country: BR (occurrence: BR)
  Receive Date: 20131216
  Receipt Date: 20131216
  Transmission Date: 20140711
  Serious: Yes (Disabling, Other)
  Sender: FDA-Public Use
  Company Number: BR-PFIZER INC-2013330822

PATIENT
  Sex: Male

DRUGS (1)
  1. LYRICA [Suspect]
     Dosage: 75 MG, 2X/DAY
     Dates: start: 201310

REACTIONS (9)
  - Hypertension [Unknown]
  - Chondropathy [Unknown]
  - Impaired work ability [Not Recovered/Not Resolved]
  - Palpitations [Unknown]
  - Drug ineffective [Not Recovered/Not Resolved]
  - Dizziness [Unknown]
  - Somnolence [Unknown]
  - Mood altered [Unknown]
  - Local swelling [Not Recovered/Not Resolved]
